FAERS Safety Report 4522699-1 (Version None)
Quarter: 2004Q4

REPORT INFORMATION
  Report Type: 
  Country: None (occurrence: None)
  Receive Date: 20041207
  Receipt Date: 20041101
  Transmission Date: 20050328
  Serious: Yes (Other)
  Sender: FDA-Public Use
  Company Number: M2004-1813

PATIENT
  Age: 32 Year
  Sex: Female

DRUGS (5)
  1. METOCLOPRAMIDE [Suspect]
     Indication: NAUSEA
     Dosage: 10 MG (2 DOSES) IV
     Route: 042
  2. VENLAFAXINE HCL [Suspect]
     Indication: MAJOR DEPRESSION
     Dosage: 150MG O.M. + 75MG O.N.
  3. ACETAMINOPHEN [Concomitant]
  4. INDOMETHACIN [Concomitant]
  5. MORPHINE SULFATE [Concomitant]

REACTIONS (3)
  - MYDRIASIS [None]
  - NYSTAGMUS [None]
  - SEROTONIN SYNDROME [None]
